FAERS Safety Report 18129511 (Version 1)
Quarter: 2020Q3

REPORT INFORMATION
  Report Type: Spontaneous
  Country: US (occurrence: US)
  Receive Date: 20200807
  Receipt Date: 20200807
  Transmission Date: 20201103
  Serious: Yes (Hospitalization)
  Sender: FDA-Public Use
  Company Number: None

PATIENT
  Age: 76 Year
  Sex: Female

DRUGS (37)
  1. BACLOFEN. [Concomitant]
     Active Substance: BACLOFEN
  2. CEPHALEXIN. [Concomitant]
     Active Substance: CEPHALEXIN
  3. EZETIMBE [Concomitant]
     Active Substance: EZETIMIBE
  4. LEXAPRO [Concomitant]
     Active Substance: ESCITALOPRAM OXALATE
  5. NIFEDIPINE. [Concomitant]
     Active Substance: NIFEDIPINE
  6. XELJANZ [Suspect]
     Active Substance: TOFACITINIB CITRATE
     Indication: PRODUCT USED FOR UNKNOWN INDICATION
     Route: 048
  7. CLOPIDOGREL [Concomitant]
     Active Substance: CLOPIDOGREL BISULFATE
  8. FOLIC ACID. [Concomitant]
     Active Substance: FOLIC ACID
  9. KETOROLAC [Concomitant]
     Active Substance: KETOROLAC TROMETHAMINE
  10. METOPROL SUC [Concomitant]
  11. NIFEDIAC CC [Concomitant]
     Active Substance: NIFEDIPINE
  12. OXYCODONE AND ACETAMINOPHEN [Concomitant]
     Active Substance: ACETAMINOPHEN\OXYCODONE HYDROCHLORIDE
  13. DOXYCYCL HYC [Concomitant]
  14. ROSUVASTATIN. [Concomitant]
     Active Substance: ROSUVASTATIN
  15. TRAZODONE [Concomitant]
     Active Substance: TRAZODONE HYDROCHLORIDE
  16. NO DRUG NAME [Concomitant]
  17. TRIAMCINOLON OIN [Concomitant]
  18. FEXOFENADINE [Concomitant]
     Active Substance: FEXOFENADINE HYDROCHLORIDE
  19. METOCLOPRAM [Concomitant]
     Active Substance: METOCLOPRAMIDE
  20. MIRTAZAPINE. [Concomitant]
     Active Substance: MIRTAZAPINE
  21. TRIAMCINOLON LOT [Concomitant]
  22. AMITIZA [Concomitant]
     Active Substance: LUBIPROSTONE
  23. AMLODIPINE [Concomitant]
     Active Substance: AMLODIPINE BESYLATE
  24. METHOTREXATE. [Concomitant]
     Active Substance: METHOTREXATE
  25. OMEPRAZOLE. [Concomitant]
     Active Substance: OMEPRAZOLE
  26. PROPO?N/APAP [Concomitant]
  27. VITAMIN D [Concomitant]
     Active Substance: VITAMIN D NOS
  28. FLUOCIN ACET OIN [Concomitant]
  29. HYDROCO/APAP [Concomitant]
     Active Substance: ACETAMINOPHEN\HYDROCODONE
  30. PANTOPRAZOLE [Concomitant]
     Active Substance: PANTOPRAZOLE
  31. TRAMADOL HCL [Concomitant]
     Active Substance: TRAMADOL HYDROCHLORIDE
  32. CLOBETASOL [Concomitant]
     Active Substance: CLOBETASOL
  33. ISOSORB MON [Concomitant]
  34. KRISTALOSE PAK [Concomitant]
  35. TORSEMIDE. [Concomitant]
     Active Substance: TORSEMIDE
  36. VENLAFAXINE [Concomitant]
     Active Substance: VENLAFAXINE HYDROCHLORIDE
  37. WARFARIN [Concomitant]
     Active Substance: WARFARIN

REACTIONS (2)
  - Condition aggravated [None]
  - Therapy interrupted [None]

NARRATIVE: CASE EVENT DATE: 20200801
